FAERS Safety Report 20778459 (Version 1)
Quarter: 2022Q2

REPORT INFORMATION
  Report Type: Spontaneous
  Country: US (occurrence: US)
  Receive Date: 20220503
  Receipt Date: 20220503
  Transmission Date: 20220721
  Serious: Yes (Other)
  Sender: FDA-Public Use
  Company Number: US-AMNEAL PHARMACEUTICALS-2021-AMRX-04665

PATIENT
  Sex: Male

DRUGS (3)
  1. VIGABATRIN [Suspect]
     Active Substance: VIGABATRIN
     Indication: Tuberous sclerosis complex
     Dosage: 400 MILLIGRAM, 2X/DAY (MIXES WITH BABY FORMULA)
     Route: 065
     Dates: start: 2021, end: 2021
  2. VIGABATRIN [Suspect]
     Active Substance: VIGABATRIN
     Dosage: 400 MILLIGRAM, 2X/DAY, MIXES WITH WATER (1 PACKET IN 10 ML OF WATER AND GIVE/TAKE 8 ML)
     Route: 065
     Dates: start: 2021, end: 2021
  3. VIGABATRIN [Suspect]
     Active Substance: VIGABATRIN
     Dosage: 550 MILLIGRAM, 2X/DAY (MIX 2 PACKETS IN 20 ML OF WATER AND TAKE 11 ML)
     Route: 065

REACTIONS (3)
  - Partial seizures [Unknown]
  - Muscle twitching [Unknown]
  - Wrong technique in product usage process [Unknown]

NARRATIVE: CASE EVENT DATE: 20210101
